FAERS Safety Report 7358399-2 (Version None)
Quarter: 2011Q1

REPORT INFORMATION
  Report Type: 
  Country: None (occurrence: None)
  Receive Date: 20110317
  Receipt Date: 20101103
  Transmission Date: 20110831
  Serious: No
  Sender: FDA-Public Use
  Company Number: US-BAYER-201023494BCC

PATIENT
  Sex: Female
  Weight: 59.091 kg

DRUGS (4)
  1. CALCITRIOL [Concomitant]
  2. ALEVE [Suspect]
     Indication: ARTHRITIS
     Dosage: COUNT BOTTLE 200CT ARTHRITIS CAP
     Route: 048
     Dates: start: 20090101
  3. CALCIUM LACTATE [Concomitant]
  4. UNCODEABLE ^UNCLASSIFIABLE^ [Concomitant]

REACTIONS (1)
  - HALO VISION [None]
